FAERS Safety Report 18414765 (Version 1)
Quarter: 2020Q4

REPORT INFORMATION
  Report Type: Spontaneous
  Country: US (occurrence: US)
  Receive Date: 20201022
  Receipt Date: 20201022
  Transmission Date: 20210114
  Serious: No
  Sender: FDA-Public Use
  Company Number: None

PATIENT
  Age: 68 Year
  Sex: Male

DRUGS (1)
  1. LEVOFLOXACIN (LEVOFLOXACIN 5MG/ML/DEXTROSE INJ, BAG, 150ML) [Suspect]
     Active Substance: LEVOFLOXACIN
     Dates: start: 20200528, end: 20200529

REACTIONS (1)
  - Angioedema [None]

NARRATIVE: CASE EVENT DATE: 20200603
